FAERS Safety Report 6649206-1 (Version None)
Quarter: 2010Q1

REPORT INFORMATION
  Report Type: 
  Country: None (occurrence: None)
  Receive Date: 20100324
  Receipt Date: 20100317
  Transmission Date: 20100710
  Serious: Yes (Other)
  Sender: FDA-Public Use
  Company Number: B0642485A

PATIENT
  Sex: Female

DRUGS (2)
  1. SERETIDE FORTE [Suspect]
     Indication: DRUG USE FOR UNKNOWN INDICATION
     Route: 055
  2. CORTISONE [Concomitant]

REACTIONS (2)
  - ADRENAL INSUFFICIENCY [None]
  - ADRENAL SUPPRESSION [None]
